FAERS Safety Report 8178304-9 (Version None)
Quarter: 2012Q1

REPORT INFORMATION
  Report Type: 
  Country: None (occurrence: None)
  Receive Date: 20120301
  Receipt Date: 20120222
  Transmission Date: 20120608
  Serious: Yes (Hospitalization)
  Sender: FDA-Public Use
  Company Number: JP-PFIZER INC-2012013810

PATIENT
  Sex: Female

DRUGS (2)
  1. CLARITHROMYCIN [Concomitant]
     Dosage: UNK
     Route: 048
     Dates: end: 20111227
  2. CELECOXIB [Suspect]
     Indication: PRODUCT USED FOR UNKNOWN INDICATION
     Dosage: 200 MG, UNKNOWN/D
     Route: 048
     Dates: start: 20111001, end: 20111227

REACTIONS (1)
  - HEPATITIS C [None]
